FAERS Safety Report 7502592-2 (Version None)
Quarter: 2011Q2

REPORT INFORMATION
  Report Type: 
  Country: None (occurrence: None)
  Receive Date: 20110525
  Receipt Date: 20110513
  Transmission Date: 20111010
  Serious: Yes (Hospitalization)
  Sender: FDA-Public Use
  Company Number: US-MYLANLABS-2011S1010167

PATIENT

DRUGS (1)
  1. PHENYTOIN SODIUM CAP [Suspect]
     Indication: CONVULSION

REACTIONS (4)
  - FALL [None]
  - DRUG LEVEL FLUCTUATING [None]
  - STERNAL FRACTURE [None]
  - DRUG LEVEL BELOW THERAPEUTIC [None]
